FAERS Safety Report 13394734 (Version 10)
Quarter: 2019Q2

REPORT INFORMATION
  Report Type: Report from Study
  Country: ES (occurrence: ES)
  Receive Date: 20170403
  Receipt Date: 20190411
  Transmission Date: 20190711
  Serious: Yes (Hospitalization)
  Sender: FDA-Public Use
  Company Number: ES-ROCHE-1913863

PATIENT
  Age: 64 Year
  Sex: Male
  Weight: 76.7 kg

DRUGS (19)
  1. FILGRASTIM [Concomitant]
     Active Substance: FILGRASTIM
     Indication: FEBRILE NEUTROPENIA
     Dosage: UNKNOWN MICROGRAM
     Route: 065
     Dates: start: 20170328, end: 20170329
  2. KYTRIL [Concomitant]
     Active Substance: GRANISETRON HYDROCHLORIDE
     Indication: PROPHYLACTIC CHEMOTHERAPY
     Route: 065
     Dates: start: 20170315, end: 20170315
  3. POLARAMINE [Concomitant]
     Active Substance: DEXCHLORPHENIRAMINE MALEATE
     Indication: PROPHYLACTIC CHEMOTHERAPY
     Route: 065
     Dates: start: 20170315, end: 20170315
  4. AMOXICILLIN. [Concomitant]
     Active Substance: AMOXICILLIN
     Indication: CELLULITIS
     Route: 065
     Dates: start: 20170223, end: 20170302
  5. PRIMPERAN [Concomitant]
     Active Substance: METOCLOPRAMIDE HYDROCHLORIDE
     Indication: NAUSEA
     Route: 065
     Dates: start: 20161110
  6. CARBOPLATIN. [Suspect]
     Active Substance: CARBOPLATIN
     Indication: NON-SMALL CELL LUNG CANCER STAGE IV
     Dosage: DAY 1 OF EACH 21-DAY CYCLE?STANDARD DOSING PER PROTOCOL?CONCENTRATION TIME CURVE (AUC=6), ?MOST RECE
     Route: 042
     Dates: start: 20161110
  7. PREGABALIN. [Concomitant]
     Active Substance: PREGABALIN
     Indication: NEURALGIA
     Route: 065
     Dates: start: 20170201, end: 20170524
  8. RANITIDINE. [Concomitant]
     Active Substance: RANITIDINE
     Indication: PROPHYLACTIC CHEMOTHERAPY
     Route: 065
     Dates: start: 20170315, end: 20170315
  9. PARACETAMOL [Concomitant]
     Active Substance: ACETAMINOPHEN
     Indication: PYREXIA
     Route: 065
     Dates: start: 20161201
  10. PIPERACILLIN/TAZOBACTAM [Concomitant]
     Active Substance: PIPERACILLIN SODIUM\TAZOBACTAM SODIUM
     Indication: RESPIRATORY TRACT INFECTION
     Route: 065
     Dates: start: 20170328, end: 20170331
  11. AMOXICILLIN/CLAVULANIC ACID [Concomitant]
     Active Substance: AMOXICILLIN\CLAVULANIC ACID
     Indication: CELLULITIS
     Dosage: 875/125 MG EVERY 8 HOURS FOR 7 DAYS
     Route: 065
     Dates: start: 20170223, end: 20170302
  12. PRAVASTATIN. [Concomitant]
     Active Substance: PRAVASTATIN
     Indication: DYSLIPIDAEMIA
  13. MIRTAZAPINE. [Concomitant]
     Active Substance: MIRTAZAPINE
     Indication: INSOMNIA
     Route: 065
     Dates: start: 20170111
  14. ATEZOLIZUMAB. [Suspect]
     Active Substance: ATEZOLIZUMAB
     Indication: NON-SMALL CELL LUNG CANCER STAGE IV
     Dosage: DAY 1 OF EACH 21-DAY CYCLE?STANDARD DOSING PER PROTOCOL?MOST RECENT DOSE: 15/MAR/2017 (1200 MG)
     Route: 042
     Dates: start: 20161110
  15. TRAMADOL. [Concomitant]
     Active Substance: TRAMADOL
     Indication: TUMOUR PAIN
     Route: 065
     Dates: start: 20170104
  16. BEVACIZUMAB. [Suspect]
     Active Substance: BEVACIZUMAB
     Indication: NON-SMALL CELL LUNG CANCER STAGE IV
     Dosage: ON DAY 1 OF EACH 21-DAY CYCLE?STANDARD DOSING PER PROTOCOL?MOST RECENT DOSE: 15/MAR/2017 (1020 MG)
     Route: 042
     Dates: start: 20161110
  17. PARACETAMOL [Concomitant]
     Active Substance: ACETAMINOPHEN
     Indication: ARTHRALGIA
     Route: 065
     Dates: start: 20161111
  18. PACLITAXEL. [Suspect]
     Active Substance: PACLITAXEL
     Indication: NON-SMALL CELL LUNG CANCER STAGE IV
     Dosage: DAY 1 OF EACH 21-DAY CYCLE?STANDARD DOSING PER PROTOCOL?MOST RECENT DOSE: 15/MAR/2017 (360 MG)
     Route: 042
     Dates: start: 20161110
  19. AUGMENTIN [Concomitant]
     Active Substance: AMOXICILLIN\CLAVULANATE POTASSIUM
     Indication: RESPIRATORY TRACT INFECTION
     Route: 065
     Dates: start: 20170328, end: 20170328

REACTIONS (1)
  - Thrombocytopenia [Recovered/Resolved]

NARRATIVE: CASE EVENT DATE: 20170327
